FAERS Safety Report 16486282 (Version 1)
Quarter: 2019Q2

REPORT INFORMATION
  Report Type: Spontaneous
  Country: US (occurrence: US)
  Receive Date: 20190517
  Receipt Date: 20190517
  Transmission Date: 20190711
  Serious: No
  Sender: FDA-Public Use
  Company Number: None

PATIENT
  Age: 41 Year
  Sex: Female

DRUGS (3)
  1. TAMOXIFEN [Concomitant]
     Active Substance: TAMOXIFEN
  2. MOBIC PLAQUENIL [Concomitant]
  3. COSENTYX [Suspect]
     Active Substance: SECUKINUMAB
     Dosage: OTHER
     Route: 058
     Dates: start: 201806

REACTIONS (1)
  - Fatigue [None]

NARRATIVE: CASE EVENT DATE: 20190517
